FAERS Safety Report 4700535-8 (Version None)
Quarter: 2005Q2

REPORT INFORMATION
  Report Type: 
  Country: None (occurrence: None)
  Receive Date: 20050627
  Receipt Date: 20050627
  Transmission Date: 20051028
  Serious: Yes (Disabling)
  Sender: FDA-Public Use
  Company Number: None

PATIENT
  Sex: Female
  Weight: 72.5755 kg

DRUGS (9)
  1. FORTEO [Suspect]
     Indication: OSTEOPOROSIS
     Dosage: 20MCG    DAILY
     Dates: start: 20050515, end: 20050624
  2. TOPROL-XL [Concomitant]
  3. METHOTREXATE [Concomitant]
  4. FOLIC ACID [Concomitant]
  5. TYLENOL [Concomitant]
  6. LIPITOR [Concomitant]
  7. ZOLOFT [Concomitant]
  8. ^SLEEPING PILL^ [Concomitant]
  9. ^OVERACTIVE BLADDER^ MEDS [Concomitant]

REACTIONS (3)
  - DISEASE PROGRESSION [None]
  - MACULAR DEGENERATION [None]
  - VISUAL ACUITY REDUCED [None]
